FAERS Safety Report 4711155-3 (Version None)
Quarter: 2005Q3

REPORT INFORMATION
  Report Type: 
  Country: None (occurrence: None)
  Receive Date: 20050708
  Receipt Date: 20050705
  Transmission Date: 20060218
  Serious: Yes (Disabling)
  Sender: FDA-Public Use
  Company Number: HQWYE953401JUL05

PATIENT
  Age: 62 Year
  Sex: Male

DRUGS (7)
  1. EFFEXOR XR [Suspect]
     Indication: MAJOR DEPRESSION
     Dosage: STARTING DOSE UNKNOWN ORAL - SEE IMAGE
     Route: 048
     Dates: start: 20050101, end: 20050101
  2. EFFEXOR XR [Suspect]
     Indication: MAJOR DEPRESSION
     Dosage: STARTING DOSE UNKNOWN ORAL - SEE IMAGE
     Route: 048
     Dates: start: 20050113, end: 20050101
  3. EFFEXOR XR [Suspect]
     Indication: MAJOR DEPRESSION
     Dosage: STARTING DOSE UNKNOWN ORAL - SEE IMAGE
     Route: 048
     Dates: start: 20050101
  4. LITHIUM CARBONATE [Suspect]
     Dosage: UNKNOWN DOSAGE, TABLET FORM ORAL
     Route: 048
     Dates: end: 20050501
  5. UNSPECIFIED BETA BLOCKER (UNSPECIFIED BETA BLOCKER) [Concomitant]
  6. UNSPECIFIED DIURETIC (UNSPECIFIED DIURETIC) [Concomitant]
  7. TEMAZEPAM [Concomitant]

REACTIONS (6)
  - AKATHISIA [None]
  - COORDINATION ABNORMAL [None]
  - DRUG INTERACTION [None]
  - IMPAIRED DRIVING ABILITY [None]
  - INTENTION TREMOR [None]
  - PARKINSON'S DISEASE [None]
